FAERS Safety Report 9039151 (Version 1)
Quarter: 2013Q1

REPORT INFORMATION
  Report Type: Spontaneous
  Country: US (occurrence: None)
  Receive Date: 20130123
  Receipt Date: 20130123
  Transmission Date: 20140127
  Serious: Yes (Other)
  Sender: FDA-Public Use
  Company Number: None

PATIENT
  Sex: Female

DRUGS (1)
  1. STIVARGA, 40 MG, BAYER [Suspect]
     Indication: COLON CANCER
     Route: 048
     Dates: start: 20121205, end: 20130103

REACTIONS (1)
  - Palmar-plantar erythrodysaesthesia syndrome [None]
